FAERS Safety Report 8838784 (Version 2)
Quarter: 2013Q2

REPORT INFORMATION
  Report Type: Report from Study
  Country: CZ (occurrence: CZ)
  Receive Date: 20121014
  Receipt Date: 20130408
  Transmission Date: 20140414
  Serious: Yes (Congenital Anomaly)
  Sender: FDA-Public Use
  Company Number: PHHY2012CZ085712

PATIENT
  Sex: 0

DRUGS (1)
  1. TEGRETOL [Suspect]
     Indication: EPILEPSY
     Dosage: 500 MG, DAILY

REACTIONS (2)
  - Karyotype analysis abnormal [Unknown]
  - Foetal exposure during pregnancy [Unknown]
